FAERS Safety Report 12203243 (Version 1)
Quarter: 2016Q1

REPORT INFORMATION
  Report Type: Spontaneous
  Country: US (occurrence: None)
  Receive Date: 20160321
  Receipt Date: 20160321
  Transmission Date: 20160526
  Serious: Yes (Life-Threatening, Hospitalization)
  Sender: FDA-Public Use
  Company Number: None

PATIENT
  Age: 74 Year
  Sex: Female

DRUGS (1)
  1. METOPROLOL TARTRATE 50MG [Suspect]
     Active Substance: METOPROLOL TARTRATE

REACTIONS (5)
  - Metabolic acidosis [None]
  - Respiratory failure [None]
  - Syncope [None]
  - Hypotension [None]
  - Atrioventricular block complete [None]

NARRATIVE: CASE EVENT DATE: 20151124
